FAERS Safety Report 7339050-4 (Version None)
Quarter: 2011Q1

REPORT INFORMATION
  Report Type: 
  Country: None (occurrence: None)
  Receive Date: 20110228
  Receipt Date: 20110216
  Transmission Date: 20110831
  Serious: Yes (Hospitalization, Other)
  Sender: FDA-Public Use
  Company Number: MPS1-1000454

PATIENT
  Age: 18 Year
  Sex: Male
  Weight: 46.2 kg

DRUGS (1)
  1. ALDURAZYME [Suspect]
     Indication: MUCOPOLYSACCHARIDOSIS I
     Dosage: 26 MG, 1X/W, INTRAVENOUS
     Route: 042
     Dates: start: 20010810

REACTIONS (1)
  - HYDROCEPHALUS [None]
